FAERS Safety Report 5098660-8 (Version None)
Quarter: 2006Q3

REPORT INFORMATION
  Report Type: 
  Country: None (occurrence: None)
  Receive Date: 20060907
  Receipt Date: 20060831
  Transmission Date: 20061208
  Serious: Yes (Other)
  Sender: FDA-Public Use
  Company Number: DE-JNJFOC-20060900662

PATIENT
  Sex: Male

DRUGS (2)
  1. RISPERDAL [Suspect]
     Indication: DRUG USE FOR UNKNOWN INDICATION
     Dosage: AT NIGHT
     Route: 048
  2. ACETYLSALICYLIC ACID [Concomitant]

REACTIONS (2)
  - BAND NEUTROPHIL COUNT INCREASED [None]
  - LYMPHOCYTE COUNT DECREASED [None]
